FAERS Safety Report 6731632-3 (Version None)
Quarter: 2010Q2

REPORT INFORMATION
  Report Type: 
  Country: None (occurrence: None)
  Receive Date: 20100519
  Receipt Date: 20100510
  Transmission Date: 20101027
  Serious: Yes (Other)
  Sender: FDA-Public Use
  Company Number: FR-WYE-G06105410

PATIENT
  Sex: Female

DRUGS (7)
  1. EFFEXOR XR [Suspect]
     Indication: DEPRESSION
     Route: 048
  2. DILTIAZEM HCL [Suspect]
     Route: 048
  3. ACETAMINOPHEN [Concomitant]
     Dosage: UNKNOWN
  4. LEXOMIL [Suspect]
     Route: 048
  5. TRUSOPT [Concomitant]
     Dosage: UNKNOWN
     Route: 047
  6. ADANCOR [Suspect]
     Route: 048
  7. DIAMOX SRC [Suspect]
     Route: 048

REACTIONS (3)
  - BALANCE DISORDER [None]
  - BLOOD PRESSURE INADEQUATELY CONTROLLED [None]
  - FALL [None]
